FAERS Safety Report 10172449 (Version 3)
Quarter: 2014Q3

REPORT INFORMATION
  Report Type: Spontaneous
  Country: US (occurrence: US)
  Receive Date: 20140515
  Receipt Date: 20140806
  Transmission Date: 20150326
  Serious: Yes (Hospitalization, Other)
  Sender: FDA-Public Use
  Company Number: US-BAYER-2014-070836

PATIENT
  Age: 35 Year
  Sex: Female
  Weight: 59 kg

DRUGS (3)
  1. VITAMIN B COMPLEX COX [Concomitant]
  2. JUNEL FE 1/20 [Concomitant]
     Active Substance: ETHINYL ESTRADIOL\NORETHINDRONE ACETATE
  3. MIRENA [Suspect]
     Active Substance: LEVONORGESTREL
     Indication: CONTRACEPTION
     Dosage: 20 MCG/24HR, CONT
     Route: 015
     Dates: start: 20101031, end: 20130826

REACTIONS (12)
  - Medical device discomfort [None]
  - Dyspareunia [None]
  - Depression [None]
  - Injury [None]
  - Anxiety [None]
  - Device difficult to use [None]
  - Pain [None]
  - Fear [None]
  - Uterine perforation [None]
  - Genital haemorrhage [None]
  - Medical device pain [None]
  - Stress [None]

NARRATIVE: CASE EVENT DATE: 2011
